FAERS Safety Report 9474136 (Version 4)
Quarter: 2014Q2

REPORT INFORMATION
  Report Type: Report from Study
  Country: US (occurrence: US)
  Receive Date: 20130823
  Receipt Date: 20140528
  Transmission Date: 20141212
  Serious: Yes (Hospitalization)
  Sender: FDA-Public Use
  Company Number: US-ACTELION-A-NJ2013-87310

PATIENT
  Age: 41 Year
  Sex: Female

DRUGS (2)
  1. TRACLEER [Suspect]
     Indication: PULMONARY ARTERIAL HYPERTENSION
     Dosage: UNK
     Route: 048
  2. RIOCIGUAT [Concomitant]

REACTIONS (8)
  - Gastric ulcer haemorrhage [Unknown]
  - Transfusion [Unknown]
  - Haematemesis [Unknown]
  - Packed red blood cell transfusion [Unknown]
  - Pneumonia [Unknown]
  - Lung infection [Unknown]
  - Syncope [Unknown]
  - Dyspnoea [Unknown]
